FAERS Safety Report 24291353 (Version 1)
Quarter: 2024Q3

REPORT INFORMATION
  Report Type: Spontaneous
  Country: US (occurrence: None)
  Receive Date: 20240906
  Receipt Date: 20240906
  Transmission Date: 20241017
  Serious: No
  Sender: DOMPE FARMACEUTICI
  Company Number: US-FARMAPROD-202308-202308-2573

PATIENT
  Age: 78 Year
  Sex: Female

DRUGS (7)
  1. OXERVATE [Suspect]
     Active Substance: CENEGERMIN-BKBJ
     Indication: Neurotrophic keratopathy
     Route: 047
     Dates: start: 20230825
  2. OXERVATE [Suspect]
     Active Substance: CENEGERMIN-BKBJ
  3. OXERVATE [Suspect]
     Active Substance: CENEGERMIN-BKBJ
  4. TYLENOL [Concomitant]
     Active Substance: ACETAMINOPHEN
  5. ACYCLOVIR [Concomitant]
     Active Substance: ACYCLOVIR
  6. ARTIFICIAL TEARS [Concomitant]
     Dosage: 0.3%-1%
  7. CEQUA [Concomitant]
     Active Substance: CYCLOSPORINE

REACTIONS (7)
  - Renal stone removal [Recovered/Resolved]
  - Photophobia [Unknown]
  - Product dose omission issue [Unknown]
  - Accidental overdose [Unknown]
  - Eye pain [Not Recovered/Not Resolved]
  - Weight increased [Unknown]
  - Headache [Unknown]

NARRATIVE: CASE EVENT DATE: 20230825
